FAERS Safety Report 4366014-5 (Version None)
Quarter: 2004Q2

REPORT INFORMATION
  Report Type: 
  Country: None (occurrence: None)
  Receive Date: 20040520
  Receipt Date: 20040512
  Transmission Date: 20050107
  Serious: Yes (Death, Life-Threatening, Hospitalization, Disabling, Other)
  Sender: FDA-Public Use
  Company Number: 2004213334GB

PATIENT
  Age: 61 Year
  Sex: Female

DRUGS (8)
  1. CABERGOLINE [Suspect]
     Indication: PARKINSON'S DISEASE
     Dosage: 8MG/DAY, ORAL
     Route: 048
  2. MELOXICAM (MELOXICAM) [Concomitant]
  3. PERINDOPRIL (PERINDOPRIL) [Concomitant]
  4. ISOSRBIDE MONITRATE [Concomitant]
  5. ENTACAPONE (ENTACAPONE) [Concomitant]
  6. PREMIQUE (ESTROGENS CONJUGATED) [Concomitant]
  7. FUROSEMIDE [Concomitant]
  8. CO-BENELDOPA (BENSERAZIDE HYDROCHLORIDE) [Concomitant]

REACTIONS (1)
  - AORTIC VALVE DISEASE [None]
